FAERS Safety Report 21982712 (Version 2)
Quarter: 2023Q1

REPORT INFORMATION
  Report Type: Spontaneous
  Country: US (occurrence: None)
  Receive Date: 20230213
  Receipt Date: 20230215
  Transmission Date: 20230417
  Serious: Yes (Hospitalization)
  Sender: FDA-Public Use
  Company Number: US-ROCHE-3284170

PATIENT
  Sex: Male

DRUGS (8)
  1. ESBRIET [Suspect]
     Active Substance: PIRFENIDONE
     Indication: Idiopathic pulmonary fibrosis
     Dosage: TAKE 2 CAPSULES (534 MG) ORALLY 3 TIMES A DAY (IN THE MORNING, AT MIDDAY AND AT NIGHT)
     Route: 048
     Dates: start: 20181221
  2. AMLODIPINE [Concomitant]
     Active Substance: AMLODIPINE BESYLATE
     Dosage: 5-40MG
  3. ATORVASTATIN [Concomitant]
     Active Substance: ATORVASTATIN
  4. GABAPENTIN [Concomitant]
     Active Substance: GABAPENTIN
  5. HYDROCHLOROTHIAZIDE [Concomitant]
     Active Substance: HYDROCHLOROTHIAZIDE
  6. OXYBUTYNINUM [Concomitant]
  7. TAMSULOSIN HYDROCHLORIDE [Concomitant]
     Active Substance: TAMSULOSIN HYDROCHLORIDE
  8. VERAPAMIL HCL [Concomitant]
     Active Substance: VERAPAMIL HYDROCHLORIDE

REACTIONS (2)
  - Pneumonia [Not Recovered/Not Resolved]
  - Respiration abnormal [Not Recovered/Not Resolved]
